FAERS Safety Report 15186333 (Version 3)
Quarter: 2018Q3

REPORT INFORMATION
  Report Type: Report from Study
  Country: US (occurrence: US)
  Receive Date: 20180723
  Receipt Date: 20180917
  Transmission Date: 20181010
  Serious: Yes (Hospitalization)
  Sender: FDA-Public Use
  Company Number: US-EXELIXIS-CABO-18013881

PATIENT
  Sex: Male

DRUGS (2)
  1. CABOMETYX [Suspect]
     Active Substance: CABOZANTINIB S-MALATE
     Indication: THYROID CANCER
     Dosage: 40 MG, QD
     Route: 048
  2. CABOMETYX [Suspect]
     Active Substance: CABOZANTINIB S-MALATE
     Dosage: 60 MG, QD
     Route: 048
     Dates: start: 20180111

REACTIONS (17)
  - Resting tremor [Unknown]
  - Gastrooesophageal reflux disease [Unknown]
  - Hypothyroidism [Unknown]
  - Diarrhoea [Unknown]
  - Cushing^s syndrome [Unknown]
  - Sleep disorder [Unknown]
  - Liver function test abnormal [Unknown]
  - Malignant neoplasm progression [Unknown]
  - Drug ineffective for unapproved indication [Unknown]
  - Appetite disorder [Unknown]
  - Vision blurred [Unknown]
  - Abdominal pain [Unknown]
  - Heart rate increased [Unknown]
  - Cough [Unknown]
  - Hypocalcaemia [Unknown]
  - Dyspnoea [Unknown]
  - Hypokalaemia [Unknown]
